FAERS Safety Report 10096212 (Version 2)
Quarter: 2014Q2

REPORT INFORMATION
  Report Type: Spontaneous
  Country: US (occurrence: US)
  Receive Date: 20140422
  Receipt Date: 20140515
  Transmission Date: 20141212
  Serious: Yes (Other)
  Sender: FDA-Public Use
  Company Number: US-ASTRAZENECA-2014SE26240

PATIENT
  Age: 70 Year
  Sex: Male

DRUGS (18)
  1. SYMBICORT [Suspect]
     Indication: CHRONIC OBSTRUCTIVE PULMONARY DISEASE
     Dosage: 160/4.5 MCG, 2 PUFFS BID
     Route: 055
     Dates: start: 2014
  2. OMEPRAZOLE [Suspect]
     Indication: GASTROOESOPHAGEAL REFLUX DISEASE
     Route: 048
     Dates: end: 2013
  3. OMEPRAZOLE [Suspect]
     Indication: GASTROOESOPHAGEAL REFLUX DISEASE
     Route: 048
     Dates: start: 2013
  4. OMEPRAZOLE [Suspect]
     Indication: GASTROOESOPHAGEAL REFLUX DISEASE
     Dosage: ONE CAPSULE IN THE MORNING AND ONE AT NIGHT.
     Route: 048
  5. OMEPRAZOLE [Suspect]
     Indication: GASTROOESOPHAGEAL REFLUX DISEASE
     Route: 048
  6. PRILOSEC OTC [Suspect]
     Indication: GASTROOESOPHAGEAL REFLUX DISEASE
     Route: 048
     Dates: end: 2013
  7. PROAIR HFA [Concomitant]
     Indication: INHALATION THERAPY
     Dosage: 2 PUFFS 4 TIMES PER PRN
     Route: 055
     Dates: start: 2013
  8. PROVENTIL [Concomitant]
     Indication: INHALATION THERAPY
     Dates: end: 2013
  9. COMBIVENT RESPIMAT [Concomitant]
     Indication: CHRONIC OBSTRUCTIVE PULMONARY DISEASE
     Dosage: 1 PUFF EVERY FOUR HOURS
     Route: 055
     Dates: start: 2013
  10. REGULAR COMBIVENT INHALER [Concomitant]
     Indication: CHRONIC OBSTRUCTIVE PULMONARY DISEASE
     Route: 055
  11. SINGULAIR [Concomitant]
     Indication: CHRONIC OBSTRUCTIVE PULMONARY DISEASE
     Dosage: 10 OR 20 MG HS
     Dates: start: 2014
  12. FLUTICASONE PROPIONATE [Concomitant]
     Indication: CHRONIC OBSTRUCTIVE PULMONARY DISEASE
     Route: 045
  13. MUCINEX OTC [Concomitant]
     Indication: CHRONIC OBSTRUCTIVE PULMONARY DISEASE
  14. MUCINEX LIQUID [Concomitant]
     Indication: BRONCHIAL SECRETION RETENTION
     Dosage: UNKNOWN DOSE AS REQUIRED
  15. GUAIFENESIN [Concomitant]
  16. SUDAFED [Concomitant]
     Indication: NASAL ABSCESS
  17. TRIAMCINOLONE [Concomitant]
     Indication: STASIS DERMATITIS
     Dosage: 0.1 % ONCE A DAY PRN
     Route: 061
     Dates: start: 2004
  18. ADVAIR DISKUS [Concomitant]
     Indication: CHRONIC OBSTRUCTIVE PULMONARY DISEASE
     Route: 055
     Dates: end: 2014

REACTIONS (11)
  - Visual acuity reduced [Unknown]
  - Impaired driving ability [Unknown]
  - Vision blurred [Not Recovered/Not Resolved]
  - Adverse event [Unknown]
  - Respiratory tract congestion [Unknown]
  - Cough [Unknown]
  - Intentional product misuse [Unknown]
  - Wrong technique in drug usage process [Recovered/Resolved]
  - Circumstance or information capable of leading to medication error [Unknown]
  - Off label use [Unknown]
  - Drug dose omission [Unknown]
